FAERS Safety Report 8336781-4 (Version None)
Quarter: 2012Q2

REPORT INFORMATION
  Report Type: 
  Country: None (occurrence: None)
  Receive Date: 20120504
  Receipt Date: 20120428
  Transmission Date: 20120825
  Serious: Yes (Other)
  Sender: FDA-Public Use
  Company Number: MX-BAYER-2012-041959

PATIENT
  Sex: Female

DRUGS (1)
  1. CLOTRIMAZOLE [Suspect]
     Dosage: 200 MG, QD
     Route: 067

REACTIONS (2)
  - THROMBOSIS [None]
  - VAGINAL HAEMORRHAGE [None]
